FAERS Safety Report 4916570-0 (Version None)
Quarter: 2006Q1

REPORT INFORMATION
  Report Type: 
  Country: None (occurrence: None)
  Receive Date: 20060216
  Receipt Date: 20060216
  Transmission Date: 20060701
  Serious: Yes (Hospitalization)
  Sender: FDA-Public Use
  Company Number: None

PATIENT
  Sex: Male

DRUGS (13)
  1. IMIPENEM-CILASTATIN 500 MG [Suspect]
     Indication: DIABETIC FOOT
     Dosage: 500 MG Q 6 HR IV
     Route: 042
     Dates: start: 20051024, end: 20051110
  2. APAP TAB [Concomitant]
  3. ALBUTEROL [Concomitant]
  4. BISACODYL [Concomitant]
  5. CLOTRIMAZOLE [Concomitant]
  6. FERROUS SULFATE TAB [Concomitant]
  7. GENTAMICIN [Concomitant]
  8. HALOPERIDOL [Concomitant]
  9. INSULIN [Concomitant]
  10. IPRATROPIUM BROMIDE [Concomitant]
  11. LACTOBACILLUS [Concomitant]
  12. OMEPRAZOLE [Concomitant]
  13. PAPAIN/UREA OINT [Concomitant]

REACTIONS (2)
  - DELIRIUM [None]
  - LETHARGY [None]
